FAERS Safety Report 7394200-9 (Version None)
Quarter: 2011Q2

REPORT INFORMATION
  Report Type: 
  Country: None (occurrence: None)
  Receive Date: 20110405
  Receipt Date: 20110325
  Transmission Date: 20111010
  Serious: Yes (Disabling, Other)
  Sender: FDA-Public Use
  Company Number: US-ELI_LILLY_AND_COMPANY-US201103008841

PATIENT
  Sex: Female

DRUGS (3)
  1. HUMALOG [Suspect]
     Dosage: UNK UNK, PRN
     Dates: start: 20080101
  2. HUMALOG [Suspect]
     Indication: TYPE 1 DIABETES MELLITUS
     Dosage: UNK UNK, TID
     Dates: start: 20080101
  3. LEVEMIR [Concomitant]
     Dosage: 15 U, BID

REACTIONS (7)
  - PERIPHERAL ARTERIAL OCCLUSIVE DISEASE [None]
  - WRONG DRUG ADMINISTERED [None]
  - VISUAL IMPAIRMENT [None]
  - MEMORY IMPAIRMENT [None]
  - BRAIN INJURY [None]
  - CATARACT [None]
  - VISUAL ACUITY REDUCED [None]
